FAERS Safety Report 4638015-0 (Version None)
Quarter: 2005Q2

REPORT INFORMATION
  Report Type: 
  Country: None (occurrence: None)
  Receive Date: 20050415
  Receipt Date: 20050405
  Transmission Date: 20051028
  Serious: Yes (Hospitalization)
  Sender: FDA-Public Use
  Company Number: 2005047595

PATIENT
  Age: 55 Year
  Sex: Male

DRUGS (10)
  1. ZITHROMAX [Suspect]
     Indication: UPPER RESPIRATORY TRACT INFLAMMATION
     Dosage: 500 MG (500 MG, QD), ORAL
     Route: 048
     Dates: start: 20050228, end: 20050228
  2. REBAMIPIDE (REBAMIPIDE) [Suspect]
     Indication: ILL-DEFINED DISORDER
     Dosage: TID, ORAL
     Route: 048
     Dates: start: 20050228, end: 20050228
  3. CHLORPHENAMINE MALEATE (CHLORPHENAMINE MALEATE) [Suspect]
     Indication: ILL-DEFINED DISORDER
     Dosage: BID, ORAL
     Route: 048
     Dates: start: 20050228, end: 20050228
  4. ASPIRIN [Suspect]
     Indication: ILL-DEFINED DISORDER
     Dosage: 1 GRAM, ORAL
     Route: 048
     Dates: start: 20050228, end: 20050228
  5. ACETAMINOPHEN [Suspect]
     Indication: ILL-DEFINED DISORDER
     Dosage: 0.6 GRAM, ORAL
     Route: 048
     Dates: start: 20050228, end: 20050228
  6. CAFFEINE (CAFFEINE) [Suspect]
     Indication: ILL-DEFINED DISORDER
     Dosage: 0.2 GRAM, ORAL
     Route: 048
     Dates: start: 20050228, end: 20050228
  7. PLANTAGO MAJOR (PLANTAGO MAJOR) [Suspect]
     Indication: ILL-DEFINED DISORDER
     Dosage: ORAL
     Route: 048
     Dates: start: 20050228, end: 20050228
  8. FOMINOBEN HYDROCHLORIDE (FOMINOBEN HYDROCHLORIDE) [Suspect]
     Indication: ILL-DEFINED DISORDER
     Dosage: ORAL
     Route: 048
     Dates: start: 20050228, end: 20050228
  9. GLYBURIDE [Concomitant]
  10. VOGLIBOSE (VOGLIBOSE) [Concomitant]

REACTIONS (2)
  - CONVULSION [None]
  - LOSS OF CONSCIOUSNESS [None]
